FAERS Safety Report 23858287 (Version 2)
Quarter: 2024Q2

REPORT INFORMATION
  Report Type: Spontaneous
  Country: US (occurrence: US)
  Receive Date: 20240515
  Receipt Date: 20240520
  Transmission Date: 20240716
  Serious: Yes (Death)
  Sender: FDA-Public Use
  Company Number: US-PFIZER INC-PV202400063153

PATIENT
  Age: 97 Year
  Sex: Male
  Weight: 70.295 kg

DRUGS (1)
  1. VYNDAQEL [Suspect]
     Active Substance: TAFAMIDIS MEGLUMINE
     Indication: Amyloidosis
     Dosage: 80 MG, DAILY
     Route: 048
     Dates: end: 20240427

REACTIONS (1)
  - Death [Fatal]

NARRATIVE: CASE EVENT DATE: 20240504
